FAERS Safety Report 9791793 (Version 1)
Quarter: 2014Q1

REPORT INFORMATION
  Report Type: Spontaneous
  Country: GB (occurrence: GB)
  Receive Date: 20140102
  Receipt Date: 20140102
  Transmission Date: 20141002
  Serious: Yes (Other)
  Sender: FDA-Public Use
  Company Number: GB-JNJFOC-20131214173

PATIENT
  Age: 6 Decade
  Sex: Male

DRUGS (1)
  1. XEPLION [Suspect]
     Indication: SCHIZOPHRENIA
     Dosage: FOR THE SECOND UNSPECIFIED MALE PATIENT, DOCTORS WERE TRYING TO REDUCE THE DOSE TO 125 MG.
     Route: 030

REACTIONS (4)
  - Blood prolactin abnormal [Unknown]
  - Loss of libido [Unknown]
  - Premature ejaculation [Unknown]
  - Sexual dysfunction [Unknown]
